FAERS Safety Report 7933664-6 (Version None)
Quarter: 2011Q4

REPORT INFORMATION
  Report Type: 
  Country: None (occurrence: None)
  Receive Date: 20111122
  Receipt Date: 20111109
  Transmission Date: 20120403
  Serious: Yes (Other)
  Sender: FDA-Public Use
  Company Number: TW-MYLANLABS-2011S1023427

PATIENT
  Age: 49 Year
  Sex: Female

DRUGS (6)
  1. PYRIDOSTIGMINE BROMIDE [Concomitant]
     Indication: MYASTHENIA GRAVIS
     Dosage: 120-180MG DAILY
     Route: 048
     Dates: start: 20090101
  2. LAMIVUDINE [Suspect]
     Indication: HIV INFECTION
     Route: 065
     Dates: start: 20090201
  3. ZIDOVUDINE [Suspect]
     Indication: HIV INFECTION
     Route: 065
     Dates: start: 20090201
  4. STAVUDINE [Suspect]
     Indication: HIV INFECTION
     Route: 065
     Dates: start: 20090101
  5. EFAVIRENZ [Suspect]
     Indication: HIV INFECTION
     Dosage: 600MG PER NIGHT
     Route: 065
     Dates: start: 20090101
  6. ATAZANAVIR [Suspect]
     Indication: HIV INFECTION
     Dosage: 400MG DAILY
     Route: 065
     Dates: start: 20090201

REACTIONS (5)
  - IMMUNE RECONSTITUTION SYNDROME [None]
  - CONDITION AGGRAVATED [None]
  - RASH [None]
  - MYASTHENIA GRAVIS [None]
  - JAUNDICE [None]
